FAERS Safety Report 6196047-8 (Version None)
Quarter: 2009Q2

REPORT INFORMATION
  Report Type: 
  Country: None (occurrence: None)
  Receive Date: 20090520
  Receipt Date: 20090508
  Transmission Date: 20091009
  Serious: Yes (Death)
  Sender: FDA-Public Use
  Company Number: JP-PFIZER INC-2009177916

PATIENT
  Age: 62 Year

DRUGS (8)
  1. SUNITINIB MALATE [Suspect]
     Indication: RENAL CELL CARCINOMA
     Dosage: 50 MG, 1X/DAY
     Route: 048
     Dates: start: 20080704, end: 20090213
  2. BISOLVON [Concomitant]
     Route: 048
  3. MUCODYNE [Concomitant]
     Route: 048
  4. DECADRON [Concomitant]
     Route: 048
  5. LAC B [Concomitant]
     Route: 048
  6. OMEPRAL [Concomitant]
     Route: 048
  7. CODEINE PHOSPHATE [Concomitant]
     Route: 048
  8. FERROMIA [Concomitant]
     Route: 048

REACTIONS (3)
  - DISSEMINATED INTRAVASCULAR COAGULATION [None]
  - PLATELET COUNT DECREASED [None]
  - WHITE BLOOD CELL COUNT DECREASED [None]
